FAERS Safety Report 5730116-9 (Version None)
Quarter: 2008Q2

REPORT INFORMATION
  Report Type: 
  Country: None (occurrence: None)
  Receive Date: 20080507
  Receipt Date: 20080425
  Transmission Date: 20081010
  Serious: Yes (Other)
  Sender: FDA-Public Use
  Company Number: US-BAYER-200813726NA

PATIENT
  Age: 28 Year
  Sex: Female

DRUGS (1)
  1. AVELOX [Suspect]
     Indication: URINARY TRACT INFECTION
     Dosage: TOTAL DAILY DOSE: 400 MG  UNIT DOSE: 400 MG
     Route: 048
     Dates: start: 20080209

REACTIONS (4)
  - ANAPHYLACTIC REACTION [None]
  - ERYTHEMA [None]
  - PRURITUS [None]
  - URTICARIA [None]
